FAERS Safety Report 8799507 (Version 5)
Quarter: 2012Q4

REPORT INFORMATION
  Report Type: 
  Country: US (occurrence: US)
  Receive Date: 20120919
  Receipt Date: 20121123
  Transmission Date: 20130627
  Serious: Yes (Other)
  Sender: FDA-Public Use
  Company Number: US-PFIZER INC-2012223906

PATIENT
  Age: 54 Year
  Sex: Female
  Weight: 59.41 kg

DRUGS (12)
  1. SUTENT [Suspect]
     Indication: PARAGANGLION NEOPLASM NOS
     Dosage: 12.5 mg, 3x/day
     Dates: start: 20120830, end: 20120910
  2. SUTENT [Suspect]
     Dosage: 37.5 mg (3 capsules of 12.5 mg), 1x/day
     Dates: start: 20120911, end: 20120923
  3. SUTENT [Suspect]
     Dosage: 37.5 mg, UNK
     Dates: start: 20121023
  4. OMEPRAZOLE [Concomitant]
     Dosage: UNK, 2x/day
  5. SYNTHROID [Concomitant]
     Indication: METASTASES TO THYROID
  6. SYNTHROID [Concomitant]
     Indication: THYROID TUMOR
  7. MORPHINE [Concomitant]
     Indication: BREAKTHROUGH PAIN
     Dosage: 15 mg, as needed
  8. DEMSER [Concomitant]
     Indication: BLOOD PRESSURE HIGH
     Dosage: 250 mg, one to two caps four times/day as needed
  9. DIBENZYLINE [Concomitant]
     Dosage: 10 mg, one cap three times/day
  10. PRAZOSIN [Concomitant]
     Dosage: 1 mg, UNK
  11. MORPHINE ER [Concomitant]
     Indication: BREAKTHROUGH PAIN
     Dosage: 15 mg, 2x/day
  12. ZOMETA [Concomitant]
     Dosage: UNK, monthly

REACTIONS (9)
  - Hypertension [Unknown]
  - Staphylococcal infection [Recovered/Resolved]
  - Bone pain [Unknown]
  - Stomatitis [Unknown]
  - Weight decreased [Unknown]
  - Off label use [Unknown]
  - Incorrect dose administered [Unknown]
  - Disease progression [Unknown]
  - Paraganglion neoplasm [Unknown]
